FAERS Safety Report 4377782-0 (Version None)
Quarter: 2004Q2

REPORT INFORMATION
  Report Type: 
  Country: None (occurrence: None)
  Receive Date: 20040615
  Receipt Date: 20040615
  Transmission Date: 20050107
  Serious: No
  Sender: FDA-Public Use
  Company Number: None

PATIENT
  Sex: Male

DRUGS (2)
  1. AZULFIDINE [Suspect]
     Indication: RHEUMATOID ARTHRITIS
     Dosage: 1000 MG BID ORAL
     Route: 048
     Dates: start: 20030926, end: 20040614
  2. ACETAMINOPHEN [Concomitant]

REACTIONS (1)
  - ATAXIA [None]
